FAERS Safety Report 9097545 (Version 1)
Quarter: 2013Q1

REPORT INFORMATION
  Report Type: Spontaneous
  Country: US (occurrence: US)
  Receive Date: 20130212
  Receipt Date: 20130212
  Transmission Date: 20140127
  Serious: No
  Sender: FDA-Public Use
  Company Number: US-PFIZER INC-2013055401

PATIENT
  Age: 35 Year
  Sex: Male
  Weight: 72.5 kg

DRUGS (1)
  1. ADVIL MIGRAINE [Suspect]
     Indication: MIGRAINE
     Dosage: TWO CAPSULES OF 200MG, ONCE
     Route: 048
     Dates: start: 20130207, end: 20130207

REACTIONS (1)
  - Drug ineffective [Unknown]
